FAERS Safety Report 11218958 (Version 3)
Quarter: 2015Q4

REPORT INFORMATION
  Report Type: Other
  Country: IT (occurrence: IT)
  Receive Date: 20150625
  Receipt Date: 20151124
  Transmission Date: 20160304
  Serious: Yes (Hospitalization)
  Sender: FDA-Public Use
  Company Number: IT-MYLANLABS-2015M1021355

PATIENT

DRUGS (2)
  1. ALPRAZOLAM. [Suspect]
     Active Substance: ALPRAZOLAM
     Indication: TENSION
     Dosage: 1 DF, TOTAL
     Route: 048
     Dates: start: 20150401, end: 20150401
  2. ANTABUSE D [Suspect]
     Active Substance: DISULFIRAM
     Indication: ALCOHOL DETOXIFICATION
     Dosage: 1 DF, TOTAL
     Route: 048
     Dates: start: 20150401, end: 20150401

REACTIONS (6)
  - Toxicity to various agents [Recovering/Resolving]
  - Drug abuse [Recovering/Resolving]
  - Alcohol abuse [Recovering/Resolving]
  - Alcohol poisoning [Recovering/Resolving]
  - Aggression [Recovering/Resolving]
  - Psychomotor hyperactivity [Recovering/Resolving]

NARRATIVE: CASE EVENT DATE: 20150401
